FAERS Safety Report 7914995-2 (Version None)
Quarter: 2011Q4

REPORT INFORMATION
  Report Type: 
  Country: None (occurrence: None)
  Receive Date: 20111115
  Receipt Date: 20111103
  Transmission Date: 20120403
  Serious: Yes (Hospitalization)
  Sender: FDA-Public Use
  Company Number: FR-ROCHE-759027

PATIENT
  Sex: Male
  Weight: 75 kg

DRUGS (14)
  1. CYCLOSPORINE [Suspect]
     Dosage: EVERYDAY
     Route: 048
  2. AMLODIPINE BESYLATE [Concomitant]
  3. VALGANCICLOVIR [Concomitant]
     Dates: start: 20101225, end: 20110506
  4. MYCOPHENOLATE MOFETIL (CELLCEPT) [Suspect]
     Indication: RENAL TRANSPLANT
     Route: 048
  5. MYCOPHENOLATE MOFETIL (CELLCEPT) [Suspect]
     Route: 048
  6. PREDNISONE TAB [Suspect]
     Indication: RENAL TRANSPLANT
     Route: 048
  7. MYCOPHENOLATE MOFETIL (CELLCEPT) [Suspect]
     Dosage: DOSE REDUCED
     Route: 048
  8. PREDNISONE [Suspect]
     Dosage: DOSE REDUCED
     Route: 048
  9. OROCAL [Concomitant]
  10. CYCLOSPORINE [Suspect]
     Indication: RENAL TRANSPLANT
     Dosage: FREQUENCY: EVERYDAY
     Route: 048
  11. CYCLOSPORINE [Suspect]
     Route: 048
  12. BACTRIM [Concomitant]
     Dates: start: 20101219, end: 20110506
  13. ATORVASTATIN CALCIUM [Concomitant]
  14. AMLODIPINE BESYLATE [Concomitant]
     Dates: start: 20110114, end: 20110120

REACTIONS (5)
  - LYMPHOCELE [None]
  - RENAL FAILURE [None]
  - SEPSIS [None]
  - BLOOD CREATININE INCREASED [None]
  - PYELONEPHRITIS ACUTE [None]
